FAERS Safety Report 13172061 (Version 2)
Quarter: 2017Q1

REPORT INFORMATION
  Report Type: Report from Study
  Country: DE (occurrence: DE)
  Receive Date: 20170131
  Receipt Date: 20170314
  Transmission Date: 20170428
  Serious: Yes (Hospitalization, Other)
  Sender: FDA-Public Use
  Company Number: DE-SUNOVION-2016SUN003326

PATIENT

DRUGS (9)
  1. SIMVASTATIN. [Concomitant]
     Active Substance: SIMVASTATIN
     Dosage: 20 MG, UNK
     Dates: start: 20120222
  2. FUROSEMIDE. [Concomitant]
     Active Substance: FUROSEMIDE
     Indication: PULMONARY OEDEMA
  3. BERODUAL [Concomitant]
     Active Substance: FENOTEROL HYDROBROMIDE\IPRATROPIUM BROMIDE
     Dosage: UNK
     Dates: start: 20110222
  4. INDACATEROL AND GLYCOPYRROLATE [Suspect]
     Active Substance: GLYCOPYRROLATE\INDACATEROL MALEATE
     Indication: CHRONIC OBSTRUCTIVE PULMONARY DISEASE
     Dosage: 1 DF, UNK
     Route: 055
     Dates: start: 20141202
  5. VENTOLAIR [Concomitant]
     Active Substance: BECLOMETHASONE DIPROPIONATE
     Dosage: UNK
     Route: 055
     Dates: start: 20150730
  6. ACETYLSALICYLIC ACID [Concomitant]
     Active Substance: ASPIRIN
     Dosage: UNK
     Dates: start: 20120222
  7. FORMOTEROL [Concomitant]
     Active Substance: FORMOTEROL
  8. RAMIPRIL. [Concomitant]
     Active Substance: RAMIPRIL
     Dosage: UNK
     Dates: start: 20120222
  9. AMLODIPINE [Concomitant]
     Active Substance: AMLODIPINE BESYLATE

REACTIONS (15)
  - Heart rate increased [Unknown]
  - Blood pressure systolic increased [Unknown]
  - Glomerular filtration rate decreased [Unknown]
  - Activated partial thromboplastin time prolonged [Unknown]
  - General physical health deterioration [Recovered/Resolved]
  - Weight decreased [Unknown]
  - Hypertensive crisis [Recovered/Resolved]
  - Troponin T increased [Unknown]
  - Chronic obstructive pulmonary disease [Recovered/Resolved]
  - Electrocardiogram ST segment depression [Recovered/Resolved]
  - Forced vital capacity decreased [Unknown]
  - C-reactive protein increased [Unknown]
  - Dyspnoea [Recovered/Resolved]
  - Forced expiratory volume decreased [Unknown]
  - Respiratory failure [Recovered/Resolved]

NARRATIVE: CASE EVENT DATE: 20150725
